FAERS Safety Report 23864257 (Version 1)
Quarter: 2024Q2

REPORT INFORMATION
  Report Type: Report from Study
  Country: US (occurrence: US)
  Receive Date: 20240516
  Receipt Date: 20240516
  Transmission Date: 20240716
  Serious: Yes (Hospitalization)
  Sender: FDA-Public Use
  Company Number: US-MIRATI-MT2024PM06635

PATIENT
  Sex: Female

DRUGS (4)
  1. KRAZATI [Suspect]
     Active Substance: ADAGRASIB
     Indication: Lung neoplasm malignant
     Dosage: 600 MG, BID
     Route: 048
     Dates: start: 20230825
  2. KRAZATI [Suspect]
     Active Substance: ADAGRASIB
     Dosage: 400 MG, BID
     Route: 048
     Dates: start: 202309, end: 20230926
  3. KRAZATI [Suspect]
     Active Substance: ADAGRASIB
     Dosage: 400 MG, BID
     Route: 048
     Dates: start: 20231006, end: 20240213
  4. KRAZATI [Suspect]
     Active Substance: ADAGRASIB
     Dosage: 200 MG, BID
     Route: 048
     Dates: start: 20240216, end: 2024

REACTIONS (1)
  - Hospitalisation [Unknown]
